FAERS Safety Report 25764114 (Version 1)
Quarter: 2025Q3

REPORT INFORMATION
  Report Type: Report from Study
  Country: CN (occurrence: CN)
  Receive Date: 20250905
  Receipt Date: 20250905
  Transmission Date: 20251020
  Serious: Yes (Hospitalization)
  Sender: BAXTER
  Company Number: CN-BAXTER-2025BAX020411

PATIENT
  Age: 59 Year
  Sex: Female
  Weight: 69.9 kg

DRUGS (25)
  1. CYCLOPHOSPHAMIDE [Suspect]
     Active Substance: CYCLOPHOSPHAMIDE
     Indication: Diffuse large B-cell lymphoma
     Dosage: 750 MG/M2 (1317.8 MG), EVERY 3 WK
     Route: 042
     Dates: start: 20250418, end: 20250418
  2. CYCLOPHOSPHAMIDE [Suspect]
     Active Substance: CYCLOPHOSPHAMIDE
     Dosage: 750 MG/M2 (1317.8 MG), EVERY 3 WK
     Route: 042
     Dates: start: 20250508
  3. RITUXIMAB [Suspect]
     Active Substance: RITUXIMAB
     Indication: Diffuse large B-cell lymphoma
     Dosage: 375 MG/M2 (658.9 MG), EVERY 3 WK (DURATION : 6.333HRS)
     Route: 042
     Dates: start: 20250418, end: 20250418
  4. RITUXIMAB [Suspect]
     Active Substance: RITUXIMAB
     Dosage: 375 MG/M2 (658.9 MG), EVERY 3 WK
     Route: 042
     Dates: start: 20250508
  5. DOXORUBICIN HYDROCHLORIDE [Suspect]
     Active Substance: DOXORUBICIN HYDROCHLORIDE
     Indication: Diffuse large B-cell lymphoma
     Dosage: 50 MG/M2 (87.9 MG), EVERY 3 WK
     Route: 042
     Dates: start: 20250418, end: 20250418
  6. DOXORUBICIN HYDROCHLORIDE [Suspect]
     Active Substance: DOXORUBICIN HYDROCHLORIDE
     Dosage: 50 MG/M2 (87.9 MG), EVERY 3 WK
     Route: 042
     Dates: start: 20250508
  7. VINCRISTINE [Suspect]
     Active Substance: VINCRISTINE
     Indication: Diffuse large B-cell lymphoma
     Dosage: 1.4 MG/M2 (2 MG), EVERY 3 WK
     Route: 042
     Dates: start: 20250418, end: 20250418
  8. VINCRISTINE [Suspect]
     Active Substance: VINCRISTINE
     Dosage: 1.4 MG/M2 (2 MG), EVERY 3 WK
     Route: 042
     Dates: start: 20250508
  9. PREDNISONE [Suspect]
     Active Substance: PREDNISONE
     Indication: Diffuse large B-cell lymphoma
     Route: 048
     Dates: start: 20250418, end: 20250419
  10. PREDNISONE [Suspect]
     Active Substance: PREDNISONE
     Route: 048
     Dates: start: 20250420
  11. SILIBININ [Concomitant]
     Active Substance: SILIBININ
     Indication: Prophylaxis
     Dosage: 35 MG [90] 210 MG, TID (3/DAYS)
     Route: 065
     Dates: start: 20250418, end: 20250418
  12. BISOPROLOL FUMARATE [Concomitant]
     Active Substance: BISOPROLOL FUMARATE
     Indication: Hyperlipidaemia
     Dosage: 5 MG, QD EVERY 1 DAY
     Route: 065
     Dates: start: 202410
  13. METHYLPREDNISOLONE SODIUM SUCCINATE [Concomitant]
     Active Substance: METHYLPREDNISOLONE SODIUM SUCCINATE
     Indication: Product used for unknown indication
     Dates: start: 20250418, end: 20250418
  14. ONDANSETRON HYDROCHLORIDE [Concomitant]
     Active Substance: ONDANSETRON HYDROCHLORIDE
     Indication: Prophylaxis of nausea and vomiting
     Dosage: 8 MG, TOTAL
     Route: 065
     Dates: start: 20250418, end: 20250424
  15. FELODIPINE [Concomitant]
     Active Substance: FELODIPINE
     Indication: Hyperlipidaemia
     Dosage: 5 MG, QD, EVERY1 DAY
     Dates: start: 202301
  16. ROSUVASTATIN CALCIUM [Concomitant]
     Active Substance: ROSUVASTATIN CALCIUM
     Indication: Hypertension
     Dosage: 10 MG, QD, EVERY1 DAY
     Route: 065
     Dates: start: 202408
  17. MESNA [Concomitant]
     Active Substance: MESNA
     Indication: Drug toxicity prophylaxis
     Dosage: 0.4 G, TID
     Route: 065
     Dates: start: 20250418, end: 20250418
  18. PROMETHAZINE HYDROCHLORIDE [Concomitant]
     Active Substance: PROMETHAZINE HYDROCHLORIDE
     Indication: Allergy prophylaxis
     Dates: start: 20250418, end: 20250418
  19. ACETAMINOPHEN [Concomitant]
     Active Substance: ACETAMINOPHEN
     Indication: Allergy prophylaxis
     Route: 065
     Dates: start: 20250418, end: 20250418
  20. APREPITANT [Concomitant]
     Active Substance: APREPITANT
     Indication: Prophylaxis of nausea and vomiting
     Route: 065
     Dates: start: 20250418, end: 20250418
  21. DEXTROSE\SODIUM CHLORIDE [Concomitant]
     Active Substance: DEXTROSE\SODIUM CHLORIDE
     Indication: Prophylaxis against dehydration
     Route: 065
     Dates: start: 20250417, end: 20250417
  22. TORSEMIDE [Concomitant]
     Active Substance: TORSEMIDE
     Indication: Polyuria
     Dates: start: 20250418, end: 20250418
  23. SODIUM BICARBONATE [Concomitant]
     Active Substance: SODIUM BICARBONATE
     Indication: pH urine increased
     Route: 065
     Dates: start: 20250418, end: 20250419
  24. DEXAMETHASONE SODIUM PHOSPHATE [Concomitant]
     Active Substance: DEXAMETHASONE SODIUM PHOSPHATE
     Indication: Neoplasm progression
     Route: 065
     Dates: start: 20250417, end: 20250417
  25. OXYGEN [Concomitant]
     Active Substance: OXYGEN
     Indication: Product used for unknown indication
     Route: 065
     Dates: start: 20250418, end: 20250418

REACTIONS (2)
  - Hypokalaemia [Recovered/Resolved]
  - Hepatic function abnormal [Recovered/Resolved]

NARRATIVE: CASE EVENT DATE: 20250419
